FAERS Safety Report 20536799 (Version 1)
Quarter: 2022Q1

REPORT INFORMATION
  Report Type: Spontaneous
  Country: AU (occurrence: AU)
  Receive Date: 20220302
  Receipt Date: 20220302
  Transmission Date: 20220423
  Serious: Yes (Other)
  Sender: FDA-Public Use
  Company Number: AU-JNJFOC-20210940517

PATIENT
  Age: 53 Year
  Sex: Male

DRUGS (7)
  1. INVEGA SUSTENNA [Suspect]
     Active Substance: PALIPERIDONE PALMITATE
     Indication: Schizophrenia
     Dosage: DAY 0 DOSE
     Route: 030
     Dates: start: 20210911
  2. INVEGA SUSTENNA [Suspect]
     Active Substance: PALIPERIDONE PALMITATE
  3. INVEGA SUSTENNA [Suspect]
     Active Substance: PALIPERIDONE PALMITATE
  4. INVEGA [Suspect]
     Active Substance: PALIPERIDONE
     Indication: Schizophrenia
     Route: 048
  5. DIAZEPAM [Concomitant]
     Active Substance: DIAZEPAM
  6. FUROSEMIDE [Concomitant]
     Active Substance: FUROSEMIDE
  7. VALPROATE SODIUM [Concomitant]
     Active Substance: VALPROATE SODIUM
     Dates: start: 20210917

REACTIONS (4)
  - Mental impairment [Unknown]
  - Intentional self-injury [Unknown]
  - Violence-related symptom [Unknown]
  - Delusion [Not Recovered/Not Resolved]

NARRATIVE: CASE EVENT DATE: 20210901
